FAERS Safety Report 20409014 (Version 1)
Quarter: 2022Q1

REPORT INFORMATION
  Report Type: Spontaneous
  Country: US (occurrence: US)
  Receive Date: 20220201
  Receipt Date: 20220201
  Transmission Date: 20220423
  Serious: No
  Sender: FDA-Public Use
  Company Number: US-BAYER-2022A015096

PATIENT
  Age: 45 Year
  Sex: Male

DRUGS (1)
  1. MIRALAX [Suspect]
     Active Substance: POLYETHYLENE GLYCOL 3350
     Indication: Constipation prophylaxis
     Dosage: 0.25 DF, QD
     Route: 048
     Dates: start: 20220125

REACTIONS (3)
  - Incorrect dose administered [Unknown]
  - Adverse drug reaction [Unknown]
  - Product after taste [Unknown]

NARRATIVE: CASE EVENT DATE: 20220101
